FAERS Safety Report 13745679 (Version 1)
Quarter: 2017Q3

REPORT INFORMATION
  Report Type: Spontaneous
  Country: CN (occurrence: CN)
  Receive Date: 20170712
  Receipt Date: 20170712
  Transmission Date: 20171127
  Serious: Yes (Other)
  Sender: FDA-Public Use
  Company Number: CN-PFIZER INC-2017301223

PATIENT
  Age: 87 Year
  Sex: Male
  Weight: 60 kg

DRUGS (1)
  1. LIPITOR [Suspect]
     Active Substance: ATORVASTATIN CALCIUM
     Indication: BLOOD CHOLESTEROL ABNORMAL
     Dosage: 20 MG, 1X/DAY
     Route: 048
     Dates: start: 20170420, end: 20170426

REACTIONS (4)
  - Abdominal discomfort [Recovering/Resolving]
  - Ventricular extrasystoles [Unknown]
  - Sinus tachycardia [Unknown]
  - Electrocardiogram T wave abnormal [Recovering/Resolving]

NARRATIVE: CASE EVENT DATE: 20170426
